FAERS Safety Report 13842360 (Version 1)
Quarter: 2017Q3

REPORT INFORMATION
  Report Type: Spontaneous
  Country: FR (occurrence: FR)
  Receive Date: 20170808
  Receipt Date: 20170808
  Transmission Date: 20171127
  Serious: Yes (Other)
  Sender: FDA-Public Use
  Company Number: FR-AMGEN-FRASP2017116205

PATIENT
  Age: 71 Year
  Sex: Male

DRUGS (6)
  1. FLUOROURACIL. [Suspect]
     Active Substance: FLUOROURACIL
     Indication: COLORECTAL CANCER
     Dosage: 5550 MG, Q2WK
     Route: 042
     Dates: start: 20120327, end: 20120605
  2. LEUCOVORIN. [Concomitant]
     Active Substance: LEUCOVORIN
     Indication: COLORECTAL CANCER
     Dosage: UNK
     Dates: start: 20120605, end: 20120605
  3. FOLINIC ACID [Suspect]
     Active Substance: LEUCOVORIN
     Indication: COLORECTAL CANCER
     Dosage: UNK
     Route: 065
     Dates: start: 20120327, end: 20120523
  4. VECTIBIX [Suspect]
     Active Substance: PANITUMUMAB
     Indication: COLORECTAL CANCER
     Dosage: 480 MG, Q2WK
     Route: 042
     Dates: start: 20120411, end: 20120605
  5. CISPLATIN. [Concomitant]
     Active Substance: CISPLATIN
     Indication: COLORECTAL CANCER
     Dosage: UNK
     Dates: start: 20120605, end: 20120605
  6. OXALIPLATIN. [Suspect]
     Active Substance: OXALIPLATIN
     Indication: COLORECTAL CANCER
     Dosage: 127 MG, Q2WK
     Route: 042
     Dates: start: 20120327, end: 20120523

REACTIONS (3)
  - Skin toxicity [Recovering/Resolving]
  - Dysgeusia [Not Recovered/Not Resolved]
  - Ocular toxicity [Recovered/Resolved]

NARRATIVE: CASE EVENT DATE: 201205
